FAERS Safety Report 5789455-8 (Version None)
Quarter: 2008Q2

REPORT INFORMATION
  Report Type: 
  Country: None (occurrence: None)
  Receive Date: 20080626
  Receipt Date: 20080108
  Transmission Date: 20081010
  Serious: No
  Sender: FDA-Public Use
  Company Number: US-ASTRAZENECA-2008UW00558

PATIENT
  Age: 80 Year
  Sex: Female
  Weight: 68 kg

DRUGS (9)
  1. PULMICORT [Suspect]
     Indication: ASTHMA
     Route: 055
     Dates: start: 20050101, end: 20070101
  2. CALCIUM [Concomitant]
  3. OMEGA 3 [Concomitant]
  4. ASPIRIN [Concomitant]
  5. COLCHICINE [Concomitant]
  6. SIMVASTATIN [Concomitant]
  7. VITAMIN D [Concomitant]
  8. FOSAMAX [Concomitant]
  9. PREVACID [Concomitant]

REACTIONS (1)
  - SWELLING FACE [None]
